FAERS Safety Report 14974023 (Version 1)
Quarter: 2018Q2

REPORT INFORMATION
  Report Type: Spontaneous
  Country: US (occurrence: US)
  Receive Date: 20180605
  Receipt Date: 20180605
  Transmission Date: 20180711
  Serious: Yes (Other)
  Sender: FDA-Public Use
  Company Number: US-PFIZER INC-2018225308

PATIENT
  Sex: Female

DRUGS (1)
  1. FLECTOR [Suspect]
     Active Substance: DICLOFENAC EPOLAMINE
     Dosage: UNK

REACTIONS (7)
  - Intervertebral disc protrusion [Unknown]
  - Pain in extremity [Unknown]
  - Systemic lupus erythematosus [Unknown]
  - Neck pain [Unknown]
  - Nerve compression [Unknown]
  - Fall [Unknown]
  - Pain [Unknown]
